FAERS Safety Report 18468151 (Version 2)
Quarter: 2021Q1

REPORT INFORMATION
  Report Type: Spontaneous
  Country: US (occurrence: US)
  Receive Date: 20201105
  Receipt Date: 20210322
  Transmission Date: 20210419
  Serious: Yes (Other)
  Sender: FDA-Public Use
  Company Number: US-SA-2020SA308470

PATIENT
  Age: 58 Year
  Sex: Female
  Weight: 110.22 kg

DRUGS (7)
  1. TAXOTERE [Suspect]
     Active Substance: DOCETAXEL
     Indication: BREAST CANCER FEMALE
     Dosage: 164MG AND 162MG, Q3W
     Dates: start: 20120302, end: 20120302
  2. TAXOTERE [Suspect]
     Active Substance: DOCETAXEL
     Dosage: 164MG AND 162MG, Q3W
     Dates: start: 20120606, end: 20120606
  3. ATENOLOL. [Concomitant]
     Active Substance: ATENOLOL
  4. HERCEPTIN [Concomitant]
     Active Substance: TRASTUZUMAB
     Indication: BREAST CANCER FEMALE
  5. CARBOPLATIN. [Concomitant]
     Active Substance: CARBOPLATIN
     Indication: BREAST CANCER FEMALE
  6. LISINOPRIL. [Concomitant]
     Active Substance: LISINOPRIL
  7. PARAPLATIN [Concomitant]
     Active Substance: CARBOPLATIN
     Indication: BREAST CANCER FEMALE

REACTIONS (3)
  - Alopecia [Unknown]
  - Emotional distress [Unknown]
  - Psychological trauma [Unknown]

NARRATIVE: CASE EVENT DATE: 201205
